FAERS Safety Report 9166977 (Version 2)
Quarter: 2013Q1

REPORT INFORMATION
  Report Type: Report from Study
  Country: ZA (occurrence: ZA)
  Receive Date: 20130317
  Receipt Date: 20130322
  Transmission Date: 20140127
  Serious: Yes (Death)
  Sender: FDA-Public Use
  Company Number: PHHY2012ZA128080

PATIENT
  Age: 55 Year
  Sex: Female

DRUGS (1)
  1. NO TREATMENT RECEIVED [Suspect]

REACTIONS (1)
  - Death [Fatal]
